FAERS Safety Report 15571159 (Version 1)
Quarter: 2018Q4

REPORT INFORMATION
  Report Type: Spontaneous
  Country: US (occurrence: US)
  Receive Date: 20181031
  Receipt Date: 20181031
  Transmission Date: 20190205
  Serious: Yes (Hospitalization)
  Sender: FDA-Public Use
  Company Number: None

PATIENT
  Age: 77 Year
  Sex: Female

DRUGS (8)
  1. MULTIVITAMIN/FL [Concomitant]
  2. TYLENOL [Concomitant]
     Active Substance: ACETAMINOPHEN
  3. BACLOFEN. [Concomitant]
     Active Substance: BACLOFEN
  4. TRAMADOL. [Concomitant]
     Active Substance: TRAMADOL
  5. VITAMIN D3 [Concomitant]
     Active Substance: CHOLECALCIFEROL
  6. GABAPENTIN. [Concomitant]
     Active Substance: GABAPENTIN
  7. REBIF [Suspect]
     Active Substance: INTERFERON BETA-1A
     Indication: MULTIPLE SCLEROSIS
     Dosage: ?          OTHER FREQUENCY:THREE TIMES A WEEK;?
     Route: 058
     Dates: start: 20180202, end: 20181020
  8. ASPIRIN LOW DOSE [Concomitant]
     Active Substance: ASPIRIN

REACTIONS (8)
  - Fall [None]
  - Device difficult to use [None]
  - Device issue [None]
  - Joint stiffness [None]
  - Ligament sprain [None]
  - Condition aggravated [None]
  - Knee arthroplasty [None]
  - Gait disturbance [None]

NARRATIVE: CASE EVENT DATE: 20181030
